FAERS Safety Report 20527595 (Version 3)
Quarter: 2023Q2

REPORT INFORMATION
  Report Type: Spontaneous
  Country: US (occurrence: US)
  Receive Date: 20220228
  Receipt Date: 20230612
  Transmission Date: 20230722
  Serious: Yes (Other)
  Sender: FDA-Public Use
  Company Number: US-PFIZER INC-202200007836

PATIENT
  Age: 83 Year
  Sex: Female

DRUGS (8)
  1. IBRANCE [Suspect]
     Active Substance: PALBOCICLIB
     Indication: Breast cancer
     Dosage: 125 MG, CYCLIC (QD FOR 21 DAYS)
     Dates: start: 20211119
  2. IBRANCE [Suspect]
     Active Substance: PALBOCICLIB
     Dosage: 100 MG, CYCLIC, (1 TABLET BY MOUTH EVERYDAY FOR 21 DAYS ON FOLLOWED BY 7 DAYS OFF)
     Route: 048
     Dates: start: 20220216, end: 20230417
  3. IBRANCE [Suspect]
     Active Substance: PALBOCICLIB
     Dosage: 100 MG, CYCLIC, (1 TABLET BY MOUTH EVERYDAY FOR 21 DAYS ON FOLLOWED BY 7 DAYS OFF)
     Route: 048
     Dates: end: 20230525
  4. IBRANCE [Suspect]
     Active Substance: PALBOCICLIB
     Dosage: 75 MG
     Dates: start: 20230525
  5. ASPIRIN [Concomitant]
     Active Substance: ASPIRIN
     Dosage: UNK, (LOW DOSE TABLETS)
  6. LOTREL [Concomitant]
     Active Substance: AMLODIPINE BESYLATE\BENAZEPRIL HYDROCHLORIDE
     Dosage: UNK
  7. NAMENDA [Concomitant]
     Active Substance: MEMANTINE HYDROCHLORIDE
     Dosage: UNK
  8. NOVOLOG [Concomitant]
     Active Substance: INSULIN ASPART
     Dosage: UNK, (FLEXPEN INJECTION (ORANGE))

REACTIONS (8)
  - Hallucination [Recovered/Resolved]
  - Abdominal pain upper [Unknown]
  - Myalgia [Unknown]
  - Pain in extremity [Unknown]
  - White blood cell count decreased [Not Recovered/Not Resolved]
  - Asthenia [Recovered/Resolved]
  - Condition aggravated [Unknown]
  - Full blood count abnormal [Not Recovered/Not Resolved]
